FAERS Safety Report 5518725-3 (Version None)
Quarter: 2007Q4

REPORT INFORMATION
  Report Type: 
  Country: None (occurrence: None)
  Receive Date: 20071115
  Receipt Date: 20071022
  Transmission Date: 20080405
  Serious: No
  Sender: FDA-Public Use
  Company Number: US-BOEHRINGER INGELHEIM PHARMACEUTICALS, INC.-2007-BP-00693BP

PATIENT
  Age: 63 Year
  Sex: Female

DRUGS (5)
  1. COMBIVENT [Suspect]
     Indication: BRONCHITIS
     Route: 055
     Dates: start: 20070105, end: 20070108
  2. COMBIVENT [Suspect]
     Indication: ASTHMA
  3. COMBIVENT [Suspect]
     Indication: INFLUENZA
  4. ALBUTEROL [Concomitant]
     Indication: ASTHMA
     Route: 055
  5. AZITHROMYCIN [Concomitant]
     Indication: INFECTION
     Route: 048
     Dates: start: 20070101

REACTIONS (2)
  - COUGH [None]
  - MYALGIA [None]
